FAERS Safety Report 5885109-8 (Version None)
Quarter: 2008Q3

REPORT INFORMATION
  Report Type: 
  Country: None (occurrence: None)
  Receive Date: 20080916
  Receipt Date: 20080910
  Transmission Date: 20090109
  Serious: Yes (Hospitalization)
  Sender: FDA-Public Use
  Company Number: DE-MERCK-0309DEU00188

PATIENT
  Age: 41 Year
  Sex: Male
  Weight: 90 kg

DRUGS (5)
  1. PROPECIA [Suspect]
     Indication: ANDROGENETIC ALOPECIA
     Route: 048
     Dates: start: 20020625, end: 20031202
  2. PROPECIA [Suspect]
     Route: 048
     Dates: start: 20040101, end: 20071229
  3. CITALOPRAM HYDROBROMIDE [Concomitant]
     Indication: ANXIETY DISORDER
     Route: 065
     Dates: start: 20010101
  4. PANTOPRAZOLE SODIUM [Concomitant]
     Indication: GASTRITIS
     Route: 048
  5. DIPYRONE [Concomitant]
     Indication: PAIN
     Route: 065

REACTIONS (2)
  - LIPOMA [None]
  - PAIN [None]
